FAERS Safety Report 4729933-3 (Version None)
Quarter: 2005Q3

REPORT INFORMATION
  Report Type: 
  Country: None (occurrence: None)
  Receive Date: 20050729
  Receipt Date: 20050729
  Transmission Date: 20060218
  Serious: No
  Sender: FDA-Public Use
  Company Number: None

PATIENT
  Age: 71 Year
  Weight: 99 kg

DRUGS (1)
  1. ALBUTEROL [Suspect]
     Indication: DYSPNOEA
     Dosage: PO 2 PUFF QID (INHALER)
     Route: 048
     Dates: start: 20050119

REACTIONS (1)
  - ANXIETY [None]
